FAERS Safety Report 9700404 (Version 1)
Quarter: 2013Q4

REPORT INFORMATION
  Report Type: Spontaneous
  Country: US (occurrence: US)
  Receive Date: 20131121
  Receipt Date: 20131121
  Transmission Date: 20140711
  Serious: Yes (Other)
  Sender: FDA-Public Use
  Company Number: US-SA-2013SA120848

PATIENT
  Sex: 0

DRUGS (1)
  1. JEVTANA [Suspect]
     Route: 065

REACTIONS (1)
  - Pleural effusion [Unknown]
